FAERS Safety Report 12849559 (Version 1)
Quarter: 2016Q4

REPORT INFORMATION
  Report Type: Spontaneous
  Country: US (occurrence: US)
  Receive Date: 20161014
  Receipt Date: 20161014
  Transmission Date: 20170207
  Serious: No
  Sender: FDA-Public Use
  Company Number: PHEH2016US025417

PATIENT
  Age: 49 Year
  Sex: Female

DRUGS (6)
  1. LETROZOLE. [Suspect]
     Active Substance: LETROZOLE
     Route: 048
     Dates: start: 20160324
  2. PALBOCICLIB [Suspect]
     Active Substance: PALBOCICLIB
     Route: 048
     Dates: start: 20160314
  3. PALBOCICLIB [Suspect]
     Active Substance: PALBOCICLIB
     Indication: BREAST CANCER METASTATIC
     Dosage: 125 MG, QD
     Route: 048
     Dates: start: 201411
  4. LETROZOLE. [Suspect]
     Active Substance: LETROZOLE
     Indication: BREAST CANCER METASTATIC
     Dosage: 2.5 MG, QD
     Route: 048
     Dates: start: 201410
  5. PALBOCICLIB [Suspect]
     Active Substance: PALBOCICLIB
     Dosage: 100 MG, QD
     Route: 048
  6. LETROZOLE. [Suspect]
     Active Substance: LETROZOLE
     Route: 048
     Dates: start: 20160314

REACTIONS (10)
  - Photosensitivity reaction [Recovering/Resolving]
  - Blister [Not Recovered/Not Resolved]
  - Skin papilloma [Recovering/Resolving]
  - Fatigue [Recovering/Resolving]
  - Bronchitis [Recovered/Resolved]
  - Oral pain [Unknown]
  - Onychomycosis [Recovering/Resolving]
  - Lymphadenopathy [Unknown]
  - Pain in extremity [Recovering/Resolving]
  - Lip blister [Not Recovered/Not Resolved]

NARRATIVE: CASE EVENT DATE: 201412
